FAERS Safety Report 4651387-6 (Version None)
Quarter: 2005Q2

REPORT INFORMATION
  Report Type: 
  Country: None (occurrence: None)
  Receive Date: 20050404
  Receipt Date: 20050223
  Transmission Date: 20051028
  Serious: No
  Sender: FDA-Public Use
  Company Number: USA041184119

PATIENT
  Age: 80 Year
  Sex: Male
  Weight: 89 kg

DRUGS (3)
  1. CYMBALTA [Suspect]
     Indication: DIABETIC NEUROPATHY
     Dosage: 30 MG/1 DAY
     Dates: start: 20041104, end: 20041110
  2. CELEBREX [Concomitant]
  3. ALEVE [Concomitant]

REACTIONS (2)
  - DIFFICULTY IN WALKING [None]
  - PAIN [None]
